FAERS Safety Report 13716876 (Version 1)
Quarter: 2017Q3

REPORT INFORMATION
  Report Type: Spontaneous
  Country: US (occurrence: US)
  Receive Date: 20170705
  Receipt Date: 20170705
  Transmission Date: 20171127
  Serious: Yes (Hospitalization, Other)
  Sender: FDA-Public Use
  Company Number: US-APOTEX-2017AP013833

PATIENT
  Age: 18 Year
  Sex: Female

DRUGS (2)
  1. METHYLPHENIDATE                    /00083802/ [Suspect]
     Active Substance: METHYLPHENIDATE
     Indication: SUBSTANCE USE
     Dosage: 100 MG, UNK
     Route: 045
  2. MODAFINIL TABLETS USP [Suspect]
     Active Substance: MODAFINIL
     Indication: SUBSTANCE USE
     Dosage: 800 MG, UNK
     Route: 048

REACTIONS (12)
  - Vomiting [Recovering/Resolving]
  - Headache [Recovering/Resolving]
  - Hyperhidrosis [Recovering/Resolving]
  - Congestive cardiomyopathy [Recovering/Resolving]
  - Tachycardia [Recovering/Resolving]
  - Dizziness [Recovering/Resolving]
  - Mitral valve incompetence [Recovering/Resolving]
  - Myocardial ischaemia [Recovering/Resolving]
  - Substance use [Unknown]
  - Nausea [Recovering/Resolving]
  - Hypotension [Recovering/Resolving]
  - Anxiety [Recovering/Resolving]
